FAERS Safety Report 8398679-5 (Version None)
Quarter: 2012Q2

REPORT INFORMATION
  Report Type: 
  Country: None (occurrence: None)
  Receive Date: 20120531
  Receipt Date: 20120523
  Transmission Date: 20120825
  Serious: Yes (Hospitalization)
  Sender: FDA-Public Use
  Company Number: FR-BAYER-2012-051787

PATIENT
  Age: 76 Year
  Sex: Male

DRUGS (14)
  1. TAZOBACTAM [Suspect]
     Dosage: UNK
     Route: 042
     Dates: start: 20120409, end: 20120410
  2. SUFENTANIL CITRATE [Concomitant]
     Indication: SEDATION
  3. CIPROFLOXACIN HYDROCHLORIDE [Suspect]
     Indication: ANTIBIOTIC THERAPY
     Dosage: UNK
     Route: 042
     Dates: start: 20120325, end: 20120328
  4. IMIPENEM AND CILASTATIN SODIUM [Concomitant]
  5. ERYTHROMYCIN [Concomitant]
     Indication: ANTIBIOTIC THERAPY
  6. VANCOMYCIN [Concomitant]
     Indication: ANTIBIOTIC THERAPY
  7. FLUCONAZOLE [Concomitant]
  8. MIDAZOLAM HCL [Concomitant]
     Indication: SEDATION
  9. CIPROFLOXACIN HYDROCHLORIDE [Suspect]
     Dosage: UNK
     Route: 042
     Dates: start: 20120409, end: 20120410
  10. TAZOBACTAM [Suspect]
     Indication: ANTIBIOTIC THERAPY
     Dosage: UNK
     Route: 042
     Dates: start: 20120325, end: 20120328
  11. ZYVOX [Concomitant]
  12. AMIKACIN [Concomitant]
     Indication: ANTIBIOTIC THERAPY
  13. CANCIDAS [Concomitant]
  14. FLUCONAZOLE [Concomitant]
     Indication: ANTIBIOTIC THERAPY

REACTIONS (6)
  - EOSINOPHIL COUNT INCREASED [None]
  - RASH [None]
  - RENAL FAILURE [None]
  - DRUG RASH WITH EOSINOPHILIA AND SYSTEMIC SYMPTOMS [None]
  - LYMPHADENOPATHY [None]
  - SKIN EXFOLIATION [None]
